FAERS Safety Report 15393560 (Version 1)
Quarter: 2018Q3

REPORT INFORMATION
  Report Type: Report from Study
  Country: US (occurrence: US)
  Receive Date: 20180917
  Receipt Date: 20180917
  Transmission Date: 20181010
  Serious: Yes (Hospitalization)
  Sender: FDA-Public Use
  Company Number: US-SA-2018SA246232

PATIENT
  Age: 67 Year
  Sex: Male
  Weight: 94.8 kg

DRUGS (3)
  1. CABAZITAXEL [Suspect]
     Active Substance: CABAZITAXEL
     Indication: PROSTATE CANCER METASTATIC
     Dosage: 55 MG/250 ML, Q3W
     Route: 042
     Dates: start: 20180622, end: 20180622
  2. CABAZITAXEL [Suspect]
     Active Substance: CABAZITAXEL
     Dosage: 55 MG/250 ML, Q3W
     Route: 042
     Dates: start: 20180802, end: 20180802
  3. ABIRATERONE ACETATE. [Suspect]
     Active Substance: ABIRATERONE ACETATE
     Indication: PROSTATE CANCER METASTATIC
     Dosage: 1000 MG, QD
     Route: 048
     Dates: start: 20180622, end: 20180829

REACTIONS (1)
  - Acute kidney injury [Unknown]

NARRATIVE: CASE EVENT DATE: 20180829
